FAERS Safety Report 14110749 (Version 1)
Quarter: 2017Q4

REPORT INFORMATION
  Report Type: Spontaneous
  Country: US (occurrence: US)
  Receive Date: 20171020
  Receipt Date: 20171020
  Transmission Date: 20180321
  Serious: Yes (Hospitalization)
  Sender: FDA-Public Use
  Company Number: US-FRESENIUS MEDICAL CARE RENAL THERAPIES GROUP-FMC-1710-001185

PATIENT
  Age: 31 Year
  Sex: Male
  Weight: 58.11 kg

DRUGS (18)
  1. EPOETIN [Concomitant]
     Active Substance: ERYTHROPOIETIN
  2. DRONABINOL. [Concomitant]
     Active Substance: DRONABINOL
  3. LOVAZA [Concomitant]
     Active Substance: OMEGA-3-ACID ETHYL ESTERS
  4. MUPIROCIN. [Concomitant]
     Active Substance: MUPIROCIN
  5. ASPRIN [Concomitant]
     Active Substance: ASPIRIN
  6. SODIUM BICARBONATE. [Concomitant]
     Active Substance: SODIUM BICARBONATE
  7. ANDROGEL [Concomitant]
     Active Substance: TESTOSTERONE
  8. ATORVASTATIN [Concomitant]
     Active Substance: ATORVASTATIN
  9. GABAPENTIN. [Concomitant]
     Active Substance: GABAPENTIN
  10. SERTRALINE [Concomitant]
     Active Substance: SERTRALINE HYDROCHLORIDE
  11. FENOFIBRATE. [Concomitant]
     Active Substance: FENOFIBRATE
  12. LEVOTHYROXINE. [Concomitant]
     Active Substance: LEVOTHYROXINE
  13. DOXYCYCLINE. [Concomitant]
     Active Substance: DOXYCYCLINE
  14. TERBINAFINE. [Concomitant]
     Active Substance: TERBINAFINE
  15. ALLOPURINOL. [Concomitant]
     Active Substance: ALLOPURINOL
  16. METOPROLOL. [Concomitant]
     Active Substance: METOPROLOL
  17. DELFLEX [Suspect]
     Active Substance: CALCIUM CHLORIDE\DEXTROSE\MAGNESIUM CHLORIDE\SODIUM CHLORIDE\SODIUM LACTATE
     Indication: END STAGE RENAL DISEASE
     Route: 033
     Dates: start: 20150203
  18. POTASSIUM CHLORIDE. [Concomitant]
     Active Substance: POTASSIUM CHLORIDE

REACTIONS (1)
  - Peritonitis bacterial [Recovered/Resolved]

NARRATIVE: CASE EVENT DATE: 20170901
